FAERS Safety Report 25081349 (Version 2)
Quarter: 2025Q1

REPORT INFORMATION
  Report Type: Other
  Country: RO (occurrence: RO)
  Receive Date: 20250316
  Receipt Date: 20250317
  Transmission Date: 20250408
  Serious: Yes (Other)
  Sender: DENTSPLY
  Company Number: RO-DENTSPLY-2025SCDP000054

PATIENT
  Age: 29 Year
  Sex: Female
  Weight: 57 kg

DRUGS (3)
  1. LIDOCAINE\PRILOCAINE [Suspect]
     Active Substance: LIDOCAINE\PRILOCAINE
     Indication: Local anaesthesia
     Dates: start: 20250225, end: 20250225
  2. EUTHYROX [Concomitant]
     Active Substance: LEVOTHYROXINE SODIUM
     Indication: Hypothyroidism
     Route: 048
     Dates: start: 20210621
  3. ENOXAPARIN SODIUM [Concomitant]
     Active Substance: ENOXAPARIN SODIUM
     Indication: Hypercoagulation
     Route: 058
     Dates: start: 20241211

REACTIONS (2)
  - Syncope [Recovered/Resolved]
  - Nausea [Recovered/Resolved]
